FAERS Safety Report 9999055 (Version 1)
Quarter: 2014Q1

REPORT INFORMATION
  Report Type: Spontaneous
  Country: US (occurrence: None)
  Receive Date: 20140311
  Receipt Date: 20140311
  Transmission Date: 20141002
  Serious: Yes (Other)
  Sender: FDA-Public Use
  Company Number: None

PATIENT
  Sex: 0

DRUGS (4)
  1. PANTOPRAZOLE SODIUM [Suspect]
     Indication: GASTROOESOPHAGEAL REFLUX DISEASE
     Dosage: 1  ONCE DAILY TAKEN BY MOUTH
     Route: 048
     Dates: start: 20140226, end: 20140304
  2. PANTOPRAZOLE SODIUM [Suspect]
     Indication: CONDITION AGGRAVATED
     Dosage: 1  ONCE DAILY TAKEN BY MOUTH
     Route: 048
     Dates: start: 20140226, end: 20140304
  3. METFORMIN [Suspect]
     Indication: DIABETES MELLITUS
     Dosage: 2     TWICE DAILY  --
     Dates: start: 20140201, end: 20140309
  4. METFORMIN [Suspect]
     Indication: PRODUCT ODOUR ABNORMAL
     Dosage: 2     TWICE DAILY  --
     Dates: start: 20140201, end: 20140309

REACTIONS (7)
  - Diarrhoea [None]
  - Arthralgia [None]
  - Gastrooesophageal reflux disease [None]
  - Headache [None]
  - Product odour abnormal [None]
  - Drug ineffective [None]
  - Product quality issue [None]
